FAERS Safety Report 5164250-1 (Version None)
Quarter: 2006Q4

REPORT INFORMATION
  Report Type: 
  Country: None (occurrence: None)
  Receive Date: 20060918
  Receipt Date: 20051010
  Transmission Date: 20070319
  Serious: Yes (Other)
  Sender: FDA-Public Use
  Company Number: US-JNJFOC-20051002969

PATIENT
  Age: 65 Year
  Sex: Male
  Weight: 77.1115 kg

DRUGS (7)
  1. TOPAMAX [Suspect]
     Indication: BRAIN NEOPLASM
     Dosage: SEE IMAGE
     Route: 048
     Dates: start: 20050928
  2. TOPAMAX [Suspect]
     Indication: CONVULSION
     Dosage: SEE IMAGE
     Route: 048
     Dates: start: 20050928
  3. TOPAMAX [Suspect]
     Indication: BRAIN NEOPLASM
     Dosage: SEE IMAGE
     Route: 048
     Dates: start: 20051005
  4. TOPAMAX [Suspect]
     Indication: CONVULSION
     Dosage: SEE IMAGE
     Route: 048
     Dates: start: 20051005
  5. TOPAMAX [Suspect]
     Indication: BRAIN NEOPLASM
     Dosage: SEE IMAGE
     Route: 048
     Dates: start: 20051008
  6. TOPAMAX [Suspect]
     Indication: CONVULSION
     Dosage: SEE IMAGE
     Route: 048
     Dates: start: 20051008
  7. PHENOBARBITAL TAB [Concomitant]

REACTIONS (2)
  - DISTURBANCE IN ATTENTION [None]
  - EXPRESSIVE LANGUAGE DISORDER [None]
